FAERS Safety Report 5887690-1 (Version None)
Quarter: 2008Q3

REPORT INFORMATION
  Report Type: 
  Country: None (occurrence: None)
  Receive Date: 20080916
  Receipt Date: 20080909
  Transmission Date: 20090109
  Serious: Yes (Hospitalization, Other)
  Sender: FDA-Public Use
  Company Number: S08-USA-02110-01

PATIENT
  Age: 73 Year
  Sex: Male
  Weight: 132.4503 kg

DRUGS (4)
  1. LEXAPRO [Suspect]
     Indication: DEPRESSION
     Dosage: 20 MG (10 MG, 2 IN 1 D), ORAL; 10 MG (10 MG, 1 IN 1 D), ORAL
     Route: 048
     Dates: start: 20050101, end: 20080101
  2. LEXAPRO [Suspect]
     Indication: DEPRESSION
     Dosage: 20 MG (10 MG, 2 IN 1 D), ORAL; 10 MG (10 MG, 1 IN 1 D), ORAL
     Route: 048
     Dates: start: 20080101
  3. DIAZEPAM [Concomitant]
  4. LIPITOR [Concomitant]

REACTIONS (13)
  - BUNDLE BRANCH BLOCK RIGHT [None]
  - CARDIAC ANEURYSM [None]
  - CHOLECYSTITIS ACUTE [None]
  - CHOLELITHIASIS [None]
  - CLOSTRIDIAL INFECTION [None]
  - CONDITION AGGRAVATED [None]
  - DRUG INEFFECTIVE [None]
  - FLUID OVERLOAD [None]
  - PANCREATIC CYST [None]
  - PNEUMONIA [None]
  - PULMONARY CONGESTION [None]
  - TREMOR [None]
  - VENTRICULAR ARRHYTHMIA [None]
